FAERS Safety Report 6508308-0 (Version None)
Quarter: 2009Q4

REPORT INFORMATION
  Report Type: 
  Country: None (occurrence: None)
  Receive Date: 20091221
  Receipt Date: 20081103
  Transmission Date: 20100525
  Serious: No
  Sender: FDA-Public Use
  Company Number: US-ASTRAZENECA-2008UW24522

PATIENT
  Sex: Female

DRUGS (3)
  1. CRESTOR [Suspect]
     Indication: BLOOD CHOLESTEROL INCREASED
     Route: 048
  2. CRESTOR [Suspect]
     Route: 048
  3. RED YEAST RICE [Concomitant]

REACTIONS (4)
  - ABDOMINAL DISTENSION [None]
  - ERUCTATION [None]
  - LOW DENSITY LIPOPROTEIN DECREASED [None]
  - VOMITING [None]
